FAERS Safety Report 4678265-0 (Version None)
Quarter: 2005Q2

REPORT INFORMATION
  Report Type: 
  Country: None (occurrence: None)
  Receive Date: 20050601
  Receipt Date: 20050520
  Transmission Date: 20051028
  Serious: Yes (Death, Other)
  Sender: FDA-Public Use
  Company Number: FR-BRISTOL-MYERS SQUIBB COMPANY-12976791

PATIENT
  Age: 31 Year
  Sex: Male
  Weight: 79 kg

DRUGS (3)
  1. ABILIFY [Suspect]
     Indication: SCHIZOPHRENIA
     Route: 048
     Dates: start: 20050414
  2. ZYPREXA [Concomitant]
     Dates: start: 20031121
  3. TEMESTA [Concomitant]
     Indication: ANXIETY
     Dates: start: 20030519

REACTIONS (2)
  - COMPLETED SUICIDE [None]
  - DEPRESSED MOOD [None]
